FAERS Safety Report 23039188 (Version 1)
Quarter: 2023Q4

REPORT INFORMATION
  Report Type: Spontaneous
  Country: US (occurrence: None)
  Receive Date: 20231006
  Receipt Date: 20231006
  Transmission Date: 20240110
  Serious: Yes (Hospitalization)
  Sender: FDA-Public Use
  Company Number: None

PATIENT
  Age: 9 Year
  Sex: Male
  Weight: 17.9 kg

DRUGS (1)
  1. NAXITAMAB-GQGK [Suspect]
     Active Substance: NAXITAMAB-GQGK
     Indication: Neuroblastoma
     Dosage: OTHER FREQUENCY : MON, WED, FRI;?
     Route: 042
     Dates: start: 20230925, end: 20230929

REACTIONS (2)
  - Hypertension [None]
  - Hypernatraemia [None]

NARRATIVE: CASE EVENT DATE: 20230929
